FAERS Safety Report 6125767-6 (Version None)
Quarter: 2009Q1

REPORT INFORMATION
  Report Type: 
  Country: None (occurrence: None)
  Receive Date: 20090319
  Receipt Date: 20090319
  Transmission Date: 20090719
  Serious: Yes (Other)
  Sender: FDA-Public Use
  Company Number: None

PATIENT
  Age: 51 Year
  Sex: Female
  Weight: 63.5036 kg

DRUGS (2)
  1. TRILEPTAL [Suspect]
     Indication: BIPOLAR DISORDER
     Dosage: 300MG  TWICE A DAY
     Dates: start: 20061109, end: 20080418
  2. TRILEPTAL [Suspect]
     Indication: PARANOIA
     Dosage: 300MG  TWICE A DAY
     Dates: start: 20061109, end: 20080418

REACTIONS (22)
  - ACTIVITIES OF DAILY LIVING IMPAIRED [None]
  - APATHY [None]
  - BIOPSY LIVER ABNORMAL [None]
  - BLOOD BRAIN BARRIER DEFECT [None]
  - COORDINATION ABNORMAL [None]
  - FACIAL PALSY [None]
  - FALL [None]
  - FATIGUE [None]
  - FEELING ABNORMAL [None]
  - HEADACHE [None]
  - HEPATIC STEATOSIS [None]
  - IMPAIRED WORK ABILITY [None]
  - LIVER DISORDER [None]
  - LIVER INJURY [None]
  - MIDDLE INSOMNIA [None]
  - NERVOUS SYSTEM DISORDER [None]
  - PRODUCT QUALITY ISSUE [None]
  - QUALITY OF LIFE DECREASED [None]
  - SENSORY DISTURBANCE [None]
  - TARDIVE DYSKINESIA [None]
  - VISUAL IMPAIRMENT [None]
  - WITHDRAWAL SYNDROME [None]
